FAERS Safety Report 12204415 (Version 2)
Quarter: 2020Q3

REPORT INFORMATION
  Report Type: Report from Study
  Country: US (occurrence: US)
  Receive Date: 20160323
  Receipt Date: 20200709
  Transmission Date: 20201102
  Serious: Yes (Other)
  Sender: FDA-Public Use
  Company Number: US-AMGEN-USASL2016033058

PATIENT
  Age: 70 Year
  Sex: Female

DRUGS (2)
  1. ENBREL [Suspect]
     Active Substance: ETANERCEPT
     Dosage: UNK, QWK
     Route: 065
     Dates: start: 20200601
  2. ENBREL [Suspect]
     Active Substance: ETANERCEPT
     Indication: RHEUMATOID ARTHRITIS
     Dosage: 50 MG, QWK
     Route: 065
     Dates: end: 20191104

REACTIONS (5)
  - Device issue [Unknown]
  - Sleep apnoea syndrome [Not Recovered/Not Resolved]
  - Cataract operation [Unknown]
  - Pulmonary mass [Unknown]
  - Influenza [Unknown]

NARRATIVE: CASE EVENT DATE: 201910
